FAERS Safety Report 10530391 (Version 1)
Quarter: 2014Q4

REPORT INFORMATION
  Report Type: Spontaneous
  Country: US (occurrence: US)
  Receive Date: 20141021
  Receipt Date: 20141021
  Transmission Date: 20150528
  Serious: No
  Sender: FDA-Public Use
  Company Number: US-009507513-1410USA010021

PATIENT
  Age: 57 Year
  Sex: Male

DRUGS (1)
  1. CLARINEX [Suspect]
     Active Substance: DESLORATADINE
     Indication: UPPER RESPIRATORY TRACT IRRITATION
     Dosage: 5 MG, QD
     Route: 048
     Dates: start: 201410, end: 20141016

REACTIONS (4)
  - Nightmare [Recovering/Resolving]
  - Irritability [Recovering/Resolving]
  - Dry skin [Recovering/Resolving]
  - Thirst [Recovering/Resolving]

NARRATIVE: CASE EVENT DATE: 201410
